FAERS Safety Report 15372685 (Version 1)
Quarter: 2018Q3

REPORT INFORMATION
  Report Type: Spontaneous
  Country: US (occurrence: US)
  Receive Date: 20180912
  Receipt Date: 20180912
  Transmission Date: 20181010
  Serious: Yes (Death)
  Sender: FDA-Public Use
  Company Number: US-ROCHE-2183477

PATIENT
  Sex: Male

DRUGS (9)
  1. CLOBETASOL [Concomitant]
     Active Substance: CLOBETASOL
  2. SENNA [Concomitant]
     Active Substance: SENNA LEAF\SENNOSIDES\SENNOSIDES A AND B
  3. ATORVASTATIN [Concomitant]
     Active Substance: ATORVASTATIN
  4. DOCUSATE [Concomitant]
     Active Substance: DOCUSATE
  5. VALACYCLOVIR [Concomitant]
     Active Substance: VALACYCLOVIR HYDROCHLORIDE
  6. RITUXAN [Suspect]
     Active Substance: RITUXIMAB
     Indication: CHRONIC LYMPHOCYTIC LEUKAEMIA
     Dosage: INJ 100MG/10ML INFUSE 452 MG IV ON DAYS 1 AND 2
     Route: 042
     Dates: start: 20180112
  7. IMBRUVICA [Concomitant]
     Active Substance: IBRUTINIB
     Route: 065
  8. LACTULOSE. [Concomitant]
     Active Substance: LACTULOSE
     Route: 065
  9. VITAMIN D3 [Concomitant]
     Active Substance: CHOLECALCIFEROL

REACTIONS (1)
  - Death [Fatal]
